FAERS Safety Report 10108487 (Version 2)
Quarter: 2014Q4

REPORT INFORMATION
  Report Type: Spontaneous
  Country: BR (occurrence: BR)
  Receive Date: 20140425
  Receipt Date: 20141229
  Transmission Date: 20150528
  Serious: Yes (Other)
  Sender: FDA-Public Use
  Company Number: BR-AMGEN INC.-BRASP2014029386

PATIENT
  Age: 21 Year
  Sex: Male
  Weight: 76 kg

DRUGS (2)
  1. ENBREL [Suspect]
     Active Substance: ETANERCEPT
     Dosage: UNK
     Route: 065
     Dates: start: 20140412
  2. ENBREL [Suspect]
     Active Substance: ETANERCEPT
     Indication: ANKYLOSING SPONDYLITIS
     Dosage: 50 MG, QWK
     Route: 058
     Dates: start: 201308, end: 20140314

REACTIONS (3)
  - Hair disorder [Not Recovered/Not Resolved]
  - Haematochezia [Not Recovered/Not Resolved]
  - Meniscus injury [Unknown]

NARRATIVE: CASE EVENT DATE: 20140202
